FAERS Safety Report 10146194 (Version 1)
Quarter: 2014Q2

REPORT INFORMATION
  Report Type: Spontaneous
  Country: CA (occurrence: CA)
  Receive Date: 20140501
  Receipt Date: 20140501
  Transmission Date: 20141212
  Serious: Yes (Other)
  Sender: FDA-Public Use
  Company Number: CA-NOVOPROD-408611

PATIENT
  Age: 74 Year
  Sex: Female

DRUGS (8)
  1. LEVEMIR PENFILL [Suspect]
     Indication: PRODUCT USED FOR UNKNOWN INDICATION
     Dosage: 6 U, QD (1 EVERY 1 DAY)
     Route: 058
  2. ATORVASTATIN CALCIUM [Concomitant]
     Dosage: UNK
     Route: 048
  3. BISOPROLOL [Concomitant]
     Dosage: UNK
     Route: 048
  4. METFORMIN [Concomitant]
     Dosage: UNK
     Route: 048
  5. JANUVIA [Concomitant]
     Dosage: UNK
     Route: 048
  6. RABEPRAZOLE [Concomitant]
     Dosage: UNK
     Route: 048
  7. SALBUTAMOL [Concomitant]
     Dosage: UNK
     Route: 065
  8. VALSARTAN [Concomitant]
     Dosage: UNK
     Route: 065

REACTIONS (2)
  - Pruritus generalised [Unknown]
  - Throat irritation [Unknown]
